FAERS Safety Report 5777072-5 (Version None)
Quarter: 2008Q2

REPORT INFORMATION
  Report Type: 
  Country: None (occurrence: None)
  Receive Date: 20080618
  Receipt Date: 20080613
  Transmission Date: 20081010
  Serious: Yes (Life-Threatening)
  Sender: FDA-Public Use
  Company Number: JP-BAYER-200810976BYL

PATIENT
  Age: 53 Year
  Sex: Male
  Weight: 66 kg

DRUGS (9)
  1. NEXAVAR [Suspect]
     Indication: RENAL CELL CARCINOMA STAGE IV
     Dosage: TOTAL DAILY DOSE: 400 MG  UNIT DOSE: 200 MG
     Route: 048
     Dates: start: 20080519, end: 20080521
  2. AMIODARONE HCL [Interacting]
     Indication: CARDIAC FAILURE
     Route: 048
     Dates: start: 20080109
  3. SALIGREN [Concomitant]
     Dosage: UNIT DOSE: 30 MG
     Route: 048
     Dates: start: 20080109
  4. ALOSENN [Concomitant]
     Route: 048
     Dates: start: 20080109
  5. RABEPRAZOLE SODIUM [Concomitant]
     Dosage: TOTAL DAILY DOSE: 10 MG  UNIT DOSE: 10 MG
     Route: 048
     Dates: start: 20080109
  6. LEVOTHYROXINE SODIUM [Concomitant]
     Route: 048
     Dates: start: 20080109
  7. VASOLAN [Concomitant]
     Route: 048
     Dates: start: 20080109
  8. BELLAMITOL [Concomitant]
     Route: 048
     Dates: start: 20080109
  9. SENNOSIDE [Concomitant]
     Dosage: UNIT DOSE: 12 MG
     Route: 048
     Dates: start: 20080109

REACTIONS (2)
  - ANOREXIA [None]
  - VENTRICULAR TACHYCARDIA [None]
